FAERS Safety Report 4569687-7 (Version None)
Quarter: 2005Q1

REPORT INFORMATION
  Report Type: 
  Country: None (occurrence: None)
  Receive Date: 20050201
  Receipt Date: 20050117
  Transmission Date: 20050727
  Serious: Yes (Hospitalization)
  Sender: FDA-Public Use
  Company Number: 6012637

PATIENT
  Age: 84 Year
  Sex: Female

DRUGS (9)
  1. LEVOTHYROXINE SODIUM [Suspect]
     Indication: HYPOTHYROIDISM
     Dosage: 100 MCG (1 IN 1 D) ORAL
     Route: 048
  2. MARCOUMAR (TABLETS) (PHENPROCOUMON) [Suspect]
     Indication: PULMONARY EMBOLISM
     Dosage: 3 MG, AS NECESSARY ORAL
     Route: 048
     Dates: start: 20021101, end: 20041206
  3. DICLOFENAC SODIUM [Suspect]
     Indication: DRUG USE FOR UNKNOWN INDICATION
     Dosage: 150,0000 MG (75 MG, 2 IN 1 D) ORAL
     Route: 048
     Dates: end: 20041206
  4. NEXIUM (TABLETS) (ESOMEPRAZOLE) [Suspect]
     Indication: DRUG USE FOR UNKNOWN INDICATION
     Dosage: 40,000 MG (20 MG, 2 IN 1 D) ORAL
     Route: 048
  5. EFFEXOR [Suspect]
     Indication: DRUG USE FOR UNKNOWN INDICATION
     Dosage: 150,0000 MG (75 MG, 2 IN 1 D) ORAL
     Route: 048
  6. DILATREND (TABLETS) (CARVEDILOL) [Concomitant]
  7. TOREM (TABLETS) (TORASEMIDE) [Concomitant]
  8. SERESTA (TABLETS) (OXAZEPAM) [Concomitant]
  9. TRITTICO (TABLETS) (TRAZODONE HYDROCHLORIDE) [Concomitant]

REACTIONS (12)
  - ANAEMIA [None]
  - CREATININE RENAL CLEARANCE INCREASED [None]
  - DRUG INTERACTION [None]
  - DUODENAL ULCER [None]
  - GASTRITIS [None]
  - GASTROINTESTINAL HAEMORRHAGE [None]
  - GASTROINTESTINAL ULCER [None]
  - HISTOLOGY ABNORMAL [None]
  - INFLAMMATION [None]
  - OBSTRUCTION [None]
  - PROTHROMBIN TIME PROLONGED [None]
  - RESPIRATORY FAILURE [None]
